FAERS Safety Report 4815765-4 (Version None)
Quarter: 2005Q4

REPORT INFORMATION
  Report Type: 
  Country: None (occurrence: None)
  Receive Date: 20051031
  Receipt Date: 20051025
  Transmission Date: 20060501
  Serious: Yes (Other)
  Sender: FDA-Public Use
  Company Number: US-GLAXOSMITHKLINE-A0579555A

PATIENT
  Age: 49 Year
  Sex: Female

DRUGS (9)
  1. IMITREX [Suspect]
     Indication: MIGRAINE
     Dosage: 100MG VARIABLE DOSE
     Route: 048
     Dates: start: 20050911, end: 20050101
  2. TOPAMAX [Concomitant]
  3. LASIX [Concomitant]
  4. ADVAIR DISKUS 100/50 [Concomitant]
  5. SINGULAIR [Concomitant]
  6. OVCON-35 [Concomitant]
  7. ALBUTEROL [Concomitant]
  8. ASCORBIC ACID [Concomitant]
  9. NAPROSYN [Concomitant]

REACTIONS (1)
  - RETINAL HAEMORRHAGE [None]
